FAERS Safety Report 10308560 (Version 2)
Quarter: 2014Q3

REPORT INFORMATION
  Report Type: Spontaneous
  Country: JP (occurrence: JP)
  Receive Date: 20140716
  Receipt Date: 20140716
  Transmission Date: 20150326
  Serious: Yes (Life-Threatening, Hospitalization)
  Sender: FDA-Public Use
  Company Number: PHHY2013JP006100

PATIENT
  Age: 47 Year
  Sex: Female

DRUGS (5)
  1. CISPLATIN. [Suspect]
     Active Substance: CISPLATIN
     Indication: CERVIX CARCINOMA STAGE II
     Dosage: 50 MG/M2, DAY 1
     Route: 042
  2. RADIOTHERAPY [Suspect]
     Active Substance: RADIATION THERAPY
     Indication: CERVIX CARCINOMA STAGE II
     Dosage: 2 GY, DAILY FRACTIONS (TOTAL OF 40 GY)
  3. PACLITAXEL. [Suspect]
     Active Substance: PACLITAXEL
     Indication: CERVIX CARCINOMA STAGE II
     Dosage: 175 MG/M2, DAY 1
     Route: 042
  4. CISPLATIN. [Suspect]
     Active Substance: CISPLATIN
     Dosage: 50 MG/M2, DAY 1
     Route: 042
  5. PACLITAXEL. [Suspect]
     Active Substance: PACLITAXEL
     Dosage: 50 MG/M2, DAY 1
     Route: 042

REACTIONS (17)
  - Oesophageal ulcer [Recovered/Resolved]
  - Oesophagitis bacterial [Recovering/Resolving]
  - Vomiting [Recovering/Resolving]
  - Oesophageal oedema [Recovered/Resolved]
  - Abdominal pain upper [Recovering/Resolving]
  - Septic shock [Recovered/Resolved]
  - Pleural effusion [Recovered/Resolved]
  - Streptococcus test positive [Recovered/Resolved]
  - Cardiovascular insufficiency [Recovering/Resolving]
  - Leukopenia [Recovered/Resolved]
  - Gastrointestinal mucosal disorder [Recovered/Resolved]
  - Cardiac arrest [Recovering/Resolving]
  - Nausea [Recovering/Resolving]
  - Disseminated intravascular coagulation [Recovered/Resolved]
  - Peripheral ischaemia [Recovering/Resolving]
  - Renal failure acute [Recovering/Resolving]
  - Dyspnoea [Recovered/Resolved]
